FAERS Safety Report 9490865 (Version 1)
Quarter: 2013Q3

REPORT INFORMATION
  Report Type: Spontaneous
  Country: US (occurrence: US)
  Receive Date: 20130830
  Receipt Date: 20130830
  Transmission Date: 20140515
  Serious: No
  Sender: FDA-Public Use
  Company Number: US-PFIZER INC-2013248007

PATIENT
  Age: 71 Year
  Sex: Female

DRUGS (11)
  1. XELJANZ [Suspect]
     Indication: RHEUMATOID ARTHRITIS
     Dosage: 5 MG, 2X/DAY
     Route: 048
     Dates: start: 20130815
  2. CYANOCOBALAMIN [Concomitant]
  3. CYMBALTA [Concomitant]
  4. LASIX [Concomitant]
  5. LEVOXYL [Concomitant]
  6. LOPID [Concomitant]
  7. METFORMIN HYDROCHLORIDE [Concomitant]
  8. NEURONTIN [Concomitant]
  9. POTASSIUM GLUCONATE [Concomitant]
  10. VITAMIN D [Concomitant]
  11. ALLOPURINOL [Concomitant]

REACTIONS (4)
  - Fatigue [Recovering/Resolving]
  - Oropharyngeal pain [Recovering/Resolving]
  - Stomatitis [Recovering/Resolving]
  - Pruritus [Recovering/Resolving]
